FAERS Safety Report 21370717 (Version 1)
Quarter: 2022Q3

REPORT INFORMATION
  Report Type: Spontaneous
  Country: US (occurrence: None)
  Receive Date: 20220922
  Receipt Date: 20220922
  Transmission Date: 20221027
  Serious: Yes (unspecified)
  Sender: FDA-Public Use
  Company Number: None

PATIENT
  Sex: Female

DRUGS (1)
  1. PIRFENIDONE [Suspect]
     Active Substance: PIRFENIDONE
     Indication: Idiopathic pulmonary fibrosis
     Dosage: 534MG THREE TIMES A DAY ORAL?
     Route: 048
     Dates: start: 20220825

REACTIONS (4)
  - Pneumonia [None]
  - Nausea [None]
  - Vomiting [None]
  - Diarrhoea [None]
